FAERS Safety Report 4707217-7 (Version None)
Quarter: 2005Q3

REPORT INFORMATION
  Report Type: 
  Country: None (occurrence: None)
  Receive Date: 20050706
  Receipt Date: 20050621
  Transmission Date: 20060218
  Serious: Yes (Other)
  Sender: FDA-Public Use
  Company Number: FR-AMGEN-UK139801

PATIENT
  Sex: Male

DRUGS (12)
  1. MIMPARA [Suspect]
     Indication: HYPERPARATHYROIDISM SECONDARY
     Route: 048
     Dates: start: 20050512
  2. HYPERIUM [Concomitant]
     Route: 048
  3. KAYEXALATE [Concomitant]
     Route: 065
  4. LASIX [Concomitant]
     Route: 048
  5. LEXOMIL [Concomitant]
     Route: 065
  6. NICARDIPINE HCL [Concomitant]
     Route: 065
  7. ENALAPRIL MALEATE [Concomitant]
     Route: 048
  8. OROCAL VITAMIN D [Concomitant]
     Route: 048
  9. EPREX [Concomitant]
     Route: 042
  10. VENOFER [Concomitant]
     Route: 065
  11. ALUMINUM HYDROXIDE GEL [Concomitant]
     Route: 065
  12. MAGNESIUM HYDROXIDE TAB [Concomitant]
     Route: 065

REACTIONS (3)
  - ALCOHOL POISONING [None]
  - BLOOD AMYLASE INCREASED [None]
  - LIPASE INCREASED [None]
